FAERS Safety Report 9459846 (Version 1)
Quarter: 2013Q3

REPORT INFORMATION
  Report Type: Spontaneous
  Country: US (occurrence: US)
  Receive Date: 20130815
  Receipt Date: 20130815
  Transmission Date: 20140515
  Serious: Yes (Hospitalization)
  Sender: FDA-Public Use
  Company Number: US-UCBSA-092381

PATIENT
  Age: 48 Year
  Sex: Male
  Weight: 72.58 kg

DRUGS (4)
  1. KEPPRA XR [Suspect]
     Indication: CONVULSION
     Dosage: 500 MG, 4 TABLETS DAILY
  2. LISINOPRIL [Concomitant]
     Indication: BLOOD PRESSURE
     Dosage: 1 DOSE DAILY
  3. CARBAMAZEPINE [Concomitant]
     Indication: CONVULSION
     Dosage: 4 DOSE DAILY
  4. PRAVASTATIN [Concomitant]
     Indication: BLOOD CHOLESTEROL
     Dosage: 1 DOSE DAILY

REACTIONS (1)
  - Foot fracture [Not Recovered/Not Resolved]
